FAERS Safety Report 4697368-8 (Version None)
Quarter: 2005Q2

REPORT INFORMATION
  Report Type: 
  Country: None (occurrence: None)
  Receive Date: 20050621
  Receipt Date: 20050608
  Transmission Date: 20051028
  Serious: Yes (Hospitalization)
  Sender: FDA-Public Use
  Company Number: USA040771546

PATIENT
  Sex: Female

DRUGS (3)
  1. HUMULIN N [Suspect]
     Indication: GESTATIONAL DIABETES
     Dates: end: 20041007
  2. HUMULIN R [Suspect]
     Indication: GESTATIONAL DIABETES
     Dates: end: 20041007
  3. PRENATAL VITAMINS [Concomitant]

REACTIONS (4)
  - DRUG EXPOSURE DURING PREGNANCY [None]
  - HYPEREMESIS GRAVIDARUM [None]
  - HYPERTENSION [None]
  - PREMATURE LABOUR [None]
